FAERS Safety Report 6445746-9 (Version None)
Quarter: 2009Q4

REPORT INFORMATION
  Report Type: 
  Country: None (occurrence: None)
  Receive Date: 20091119
  Receipt Date: 20090930
  Transmission Date: 20100525
  Serious: Yes (Other)
  Sender: FDA-Public Use
  Company Number: GB-RANBAXY-2009US-24742

PATIENT

DRUGS (1)
  1. PROCTOSOL-HC [Suspect]
     Dosage: 1 %, TID
     Route: 061

REACTIONS (4)
  - CATARACT [None]
  - INTRAOCULAR PRESSURE INCREASED [None]
  - VISION BLURRED [None]
  - VISUAL ACUITY REDUCED [None]
